FAERS Safety Report 10228395 (Version 1)
Quarter: 2014Q2

REPORT INFORMATION
  Report Type: Spontaneous
  Country: US (occurrence: US)
  Receive Date: 20140610
  Receipt Date: 20140610
  Transmission Date: 20141212
  Serious: Yes (Hospitalization)
  Sender: FDA-Public Use
  Company Number: US-FRI-1000067907

PATIENT
  Sex: Female
  Weight: 52 kg

DRUGS (4)
  1. ARMOUR THYROID [Suspect]
  2. SYNTHROID [Suspect]
  3. CYTOMEL [Suspect]
  4. TIROSINT [Concomitant]
     Dosage: 75 MCG

REACTIONS (6)
  - Chest pain [Unknown]
  - Malaise [Unknown]
  - Urticaria [Recovered/Resolved]
  - Scar [Unknown]
  - Weight increased [Unknown]
  - Autoimmune thyroiditis [Unknown]
